FAERS Safety Report 16646205 (Version 2)
Quarter: 2019Q4

REPORT INFORMATION
  Report Type: Spontaneous
  Country: BR (occurrence: BR)
  Receive Date: 20190730
  Receipt Date: 20191017
  Transmission Date: 20200122
  Serious: No
  Sender: FDA-Public Use
  Company Number: BR-ROCHE-2364829

PATIENT
  Age: 58 Year
  Sex: Female

DRUGS (4)
  1. FINGOLIMOD. [Concomitant]
     Active Substance: FINGOLIMOD
  2. OCREVUS [Suspect]
     Active Substance: OCRELIZUMAB
     Indication: MULTIPLE SCLEROSIS
     Route: 065
  3. GLATIRAMER ACETATE. [Concomitant]
     Active Substance: GLATIRAMER ACETATE
  4. NATALIZUMAB [Concomitant]
     Active Substance: NATALIZUMAB

REACTIONS (2)
  - Herpes zoster [Recovering/Resolving]
  - Hypogammaglobulinaemia [Recovering/Resolving]
